FAERS Safety Report 21837414 (Version 1)
Quarter: 2023Q1

REPORT INFORMATION
  Report Type: Spontaneous
  Country: US (occurrence: None)
  Receive Date: 20230106
  Receipt Date: 20230106
  Transmission Date: 20230417
  Serious: Yes (Hospitalization)
  Sender: FDA-Public Use
  Company Number: None

PATIENT
  Age: 85 Year
  Sex: Male

DRUGS (8)
  1. CABOMETYX [Suspect]
     Active Substance: CABOZANTINIB S-MALATE
     Indication: Renal cell carcinoma
     Dosage: FREQUENCY : DAILY;?
     Route: 048
     Dates: start: 20221116, end: 20221226
  2. amlodipine/olmesartan 10/20mg [Concomitant]
  3. GLIPIZIDE [Concomitant]
     Active Substance: GLIPIZIDE
  4. METFORMIN HYDROCHLORIDE [Concomitant]
     Active Substance: METFORMIN HYDROCHLORIDE
  5. metoprolol er succ 25mg [Concomitant]
  6. pioglitazone 15mg [Concomitant]
  7. SIMVASTATIN [Concomitant]
     Active Substance: SIMVASTATIN
  8. vitamin d 2000units [Concomitant]

REACTIONS (2)
  - Dizziness [None]
  - Decreased appetite [None]

NARRATIVE: CASE EVENT DATE: 20221226
